FAERS Safety Report 7386325-9 (Version None)
Quarter: 2011Q1

REPORT INFORMATION
  Report Type: 
  Country: None (occurrence: None)
  Receive Date: 20110331
  Receipt Date: 20110318
  Transmission Date: 20110831
  Serious: Yes (Other)
  Sender: FDA-Public Use
  Company Number: PHHY2011AU23295

PATIENT
  Sex: Male

DRUGS (1)
  1. RITALIN [Suspect]
     Indication: DYSLEXIA
     Dosage: 10 MG, QD

REACTIONS (4)
  - MOOD SWINGS [None]
  - DEPRESSED MOOD [None]
  - CRYING [None]
  - PSYCHOMOTOR HYPERACTIVITY [None]
